FAERS Safety Report 8828173 (Version 1)
Quarter: 2012Q4

REPORT INFORMATION
  Report Type: 
  Country: US (occurrence: US)
  Receive Date: 20121005
  Receipt Date: 20121005
  Transmission Date: 20130627
  Serious: No
  Sender: FDA-Public Use
  Company Number: US-PFIZER INC-2012244812

PATIENT
  Age: 49 Year
  Sex: Female
  Weight: 122 kg

DRUGS (5)
  1. LYRICA [Suspect]
     Indication: BACK PAIN
     Dosage: 50 mg, 3x/day
     Route: 048
     Dates: end: 20120928
  2. LYRICA [Suspect]
     Indication: INTERVERTEBRAL DISC DEGENERATION
     Dosage: 100 mg, 3x/day
     Route: 048
     Dates: start: 20120928, end: 201210
  3. LYRICA [Suspect]
     Dosage: 50 mg, 3x/day
     Dates: start: 201210
  4. PRAVASTATIN [Concomitant]
     Dosage: UNK
  5. ZOLOFT [Concomitant]
     Dosage: UNK

REACTIONS (6)
  - Gait disturbance [Unknown]
  - Vision blurred [Unknown]
  - Malaise [Unknown]
  - Dizziness [Unknown]
  - Feeling drunk [Unknown]
  - Fall [Unknown]
